FAERS Safety Report 7987684-6 (Version None)
Quarter: 2011Q4

REPORT INFORMATION
  Report Type: 
  Country: None (occurrence: None)
  Receive Date: 20111216
  Receipt Date: 20101101
  Transmission Date: 20120403
  Serious: No
  Sender: FDA-Public Use
  Company Number: US-BRISTOL-MYERS SQUIBB COMPANY-15361462

PATIENT
  Age: 42 Year
  Sex: Male

DRUGS (2)
  1. ABILIFY [Suspect]
     Indication: AFFECTIVE DISORDER
     Dates: end: 20101027
  2. DEPAKOTE [Concomitant]

REACTIONS (1)
  - EXTRAPYRAMIDAL DISORDER [None]
